FAERS Safety Report 9378676 (Version 1)
Quarter: 2013Q3

REPORT INFORMATION
  Report Type: Spontaneous
  Country: ES (occurrence: ES)
  Receive Date: 20130702
  Receipt Date: 20130702
  Transmission Date: 20140515
  Serious: Yes (Other)
  Sender: FDA-Public Use
  Company Number: ES-CELGENEUS-144-21660-13063196

PATIENT
  Sex: Female

DRUGS (2)
  1. ABRAXANE [Suspect]
     Indication: PANCREATIC CARCINOMA
     Route: 041
  2. GEMCITABINE [Concomitant]
     Indication: PANCREATIC CARCINOMA
     Route: 065

REACTIONS (1)
  - Cholecystitis infective [Unknown]
